FAERS Safety Report 6536909-2 (Version None)
Quarter: 2010Q1

REPORT INFORMATION
  Report Type: 
  Country: None (occurrence: None)
  Receive Date: 20100105
  Receipt Date: 20091222
  Transmission Date: 20100710
  Serious: Yes (Other)
  Sender: FDA-Public Use
  Company Number: 09-000760

PATIENT
  Age: 44 Year
  Sex: Female

DRUGS (3)
  1. DOVONEX [Suspect]
     Indication: PSORIASIS
     Dosage: TOPICAL
     Route: 061
     Dates: start: 20090318, end: 20090419
  2. DOVONEX [Suspect]
     Indication: PSORIASIS
     Dosage: TOPICAL
     Route: 061
     Dates: start: 20090417, end: 20090420
  3. DOVONEX [Suspect]
     Dosage: APPLY TO FACE TWICE DAILY
     Dates: start: 20090417, end: 20090420

REACTIONS (4)
  - APPLICATION SITE IRRITATION [None]
  - APPLICATION SITE PAIN [None]
  - DRUG ADMINISTERED AT INAPPROPRIATE SITE [None]
  - PHOTOSENSITIVITY REACTION [None]
